FAERS Safety Report 5596592-X (Version None)
Quarter: 2007Q4

REPORT INFORMATION
  Report Type: 
  Country: None (occurrence: None)
  Receive Date: 20071219
  Receipt Date: 20070917
  Transmission Date: 20080405
  Serious: Yes (Other)
  Sender: FDA-Public Use
  Company Number: HQWYE207918SEP07

PATIENT
  Age: 50 Year
  Sex: Female
  Weight: 82.63 kg

DRUGS (5)
  1. TORISEL [Suspect]
     Indication: RENAL CELL CARCINOMA STAGE UNSPECIFIED
     Dosage: 25 MG X 4 WEEKS THEN 37.5 EVERY WEEK, INTRAVENOUS
     Route: 042
     Dates: start: 20070716
  2. DEXAMETHASONE TAB [Concomitant]
  3. PROCRIT [Concomitant]
  4. DIPHENHYDRAMINE HCL [Concomitant]
  5. ZOFRAN [Concomitant]

REACTIONS (2)
  - BLOOD GLUCOSE INCREASED [None]
  - BLOOD TRIGLYCERIDES INCREASED [None]
